FAERS Safety Report 7476396-3 (Version None)
Quarter: 2011Q2

REPORT INFORMATION
  Report Type: 
  Country: None (occurrence: None)
  Receive Date: 20110512
  Receipt Date: 20110509
  Transmission Date: 20111010
  Serious: Yes (Death, Hospitalization)
  Sender: FDA-Public Use
  Company Number: D0058627A

PATIENT
  Sex: Male
  Weight: 77 kg

DRUGS (5)
  1. LEUKERAN [Suspect]
     Dosage: 8MG PER DAY
     Route: 048
     Dates: start: 20080123, end: 20080418
  2. LEUPROLIDE ACETATE [Concomitant]
     Indication: PROSTATE CANCER
     Dosage: 3.57MG MONTHLY
     Route: 058
     Dates: start: 19960101
  3. FOSTER [Suspect]
     Route: 055
     Dates: start: 20080101
  4. SIMVASTATIN [Concomitant]
     Dosage: 20MG PER DAY
     Route: 048
     Dates: start: 20060101, end: 20080422
  5. CAMOMILE [Concomitant]
     Indication: SINUSITIS
     Route: 055
     Dates: start: 20080201, end: 20080401

REACTIONS (6)
  - RETICULOCYTOSIS [None]
  - CHEST DISCOMFORT [None]
  - PALLOR [None]
  - COOMBS POSITIVE HAEMOLYTIC ANAEMIA [None]
  - DEATH [None]
  - DYSPNOEA [None]
